FAERS Safety Report 17856523 (Version 1)
Quarter: 2020Q2

REPORT INFORMATION
  Report Type: Report from Study
  Country: CA (occurrence: CA)
  Receive Date: 20200603
  Receipt Date: 20200603
  Transmission Date: 20200714
  Serious: Yes (Other)
  Sender: FDA-Public Use
  Company Number: CA-JNJFOC-20200531213

PATIENT
  Age: 36 Year
  Sex: Female
  Weight: 82 kg

DRUGS (1)
  1. REMICADE [Suspect]
     Active Substance: INFLIXIMAB
     Indication: COLITIS ULCERATIVE
     Route: 042

REACTIONS (4)
  - Herpes virus infection [Unknown]
  - Off label use [Unknown]
  - Herpes ophthalmic [Unknown]
  - Product use issue [Unknown]

NARRATIVE: CASE EVENT DATE: 20200518
